FAERS Safety Report 17368906 (Version 1)
Quarter: 2020Q1

REPORT INFORMATION
  Report Type: Spontaneous
  Country: US (occurrence: US)
  Receive Date: 20200120
  Receipt Date: 20200120
  Transmission Date: 20200409
  Serious: No
  Sender: FDA-Public Use
  Company Number: None

PATIENT
  Age: 51 Year
  Sex: Male

DRUGS (1)
  1. SUTENT [Suspect]
     Active Substance: SUNITINIB MALATE
     Indication: NEOPLASM MALIGNANT
     Dosage: ?          OTHER FREQUENCY:QDX14 OFF 7;?
     Route: 048
     Dates: start: 20181108

REACTIONS (2)
  - Hypertension [None]
  - Liver operation [None]

NARRATIVE: CASE EVENT DATE: 20200116
